FAERS Safety Report 6326749-1 (Version None)
Quarter: 2009Q3

REPORT INFORMATION
  Report Type: 
  Country: None (occurrence: None)
  Receive Date: 20090825
  Receipt Date: 20090820
  Transmission Date: 20100115
  Serious: Yes (Life-Threatening, Other)
  Sender: FDA-Public Use
  Company Number: PHHY2009ES35073

PATIENT
  Age: 49 Year
  Sex: Female

DRUGS (6)
  1. FEMARA [Suspect]
     Indication: BREAST CANCER
     Dosage: 2.5 MG, UNK
     Route: 048
     Dates: start: 20070101
  2. IMMUNOGLOBULINS [Suspect]
     Dosage: UNK
     Dates: start: 20090401
  3. ANTILYMPHOCYTE SERUM [Suspect]
     Dosage: UNK
     Route: 042
     Dates: start: 20090401
  4. IMUREL [Concomitant]
     Indication: DERMATOMYOSITIS
     Dosage: 100 MG, UNK
     Route: 048
     Dates: start: 20090401
  5. PREDNISONE [Concomitant]
     Indication: BREAST CANCER
     Dosage: 20 MG, UNK
     Route: 048
     Dates: start: 20090401
  6. OMEPRAZOL [Concomitant]
     Indication: DERMATOMYOSITIS
     Dosage: 20 MG, UNK
     Route: 048

REACTIONS (3)
  - MYOPATHY [None]
  - MYOSITIS [None]
  - PULMONARY EMBOLISM [None]
